FAERS Safety Report 5049205-X (Version None)
Quarter: 2006Q2

REPORT INFORMATION
  Report Type: 
  Country: None (occurrence: None)
  Receive Date: 20060613
  Receipt Date: 20060222
  Transmission Date: 20061013
  Serious: Yes (Hospitalization)
  Sender: FDA-Public Use
  Company Number: 2006-00405

PATIENT
  Age: 68 Year
  Sex: Male

DRUGS (8)
  1. VELCADE [Suspect]
     Indication: MANTLE CELL LYMPHOMA
     Dosage: 2.60 MG, IV BOLUS
     Route: 040
     Dates: start: 20051212, end: 20060202
  2. RITUXAN [Concomitant]
  3. GLUCOSAMINE (GLUCOSAMINE) [Concomitant]
  4. NEURONTIN [Concomitant]
  5. HALCION [Concomitant]
  6. K-DUR 10 [Concomitant]
  7. NEUPOGEN [Concomitant]
  8. NEUMEGA [Concomitant]

REACTIONS (2)
  - ANGINA PECTORIS [None]
  - EJECTION FRACTION DECREASED [None]
